FAERS Safety Report 17080556 (Version 1)
Quarter: 2019Q4

REPORT INFORMATION
  Report Type: Spontaneous
  Country: IT (occurrence: IT)
  Receive Date: 20191127
  Receipt Date: 20191127
  Transmission Date: 20200122
  Serious: Yes (Life-Threatening)
  Sender: FDA-Public Use
  Company Number: IT-TEVA-2019-IT-1141232

PATIENT
  Age: 51 Year
  Sex: Male

DRUGS (5)
  1. SODIUM VALPROATE [Concomitant]
     Active Substance: VALPROATE SODIUM
  2. BISOPROLOL HEMIFUMARATE [Suspect]
     Active Substance: BISOPROLOL FUMARATE
     Dosage: 50 MILLIGRAM PER DAY
     Route: 048
     Dates: start: 20190626
  3. TRIATEC (RAMIPRIL) [Suspect]
     Active Substance: RAMIPRIL
     Dosage: 2.5 MILLIGRAM PER DAY
     Route: 048
     Dates: start: 20190626
  4. CLOZAPINE. [Concomitant]
     Active Substance: CLOZAPINE
     Indication: SCHIZOAFFECTIVE DISORDER
  5. ABILIFY [Suspect]
     Active Substance: ARIPIPRAZOLE
     Route: 048

REACTIONS (2)
  - Ventricular extrasystoles [Not Recovered/Not Resolved]
  - Arrhythmia [Not Recovered/Not Resolved]

NARRATIVE: CASE EVENT DATE: 20190710
